FAERS Safety Report 15372520 (Version 1)
Quarter: 2018Q3

REPORT INFORMATION
  Report Type: Other
  Country: FR (occurrence: FR)
  Receive Date: 20180911
  Receipt Date: 20180911
  Transmission Date: 20181010
  Serious: Yes (Hospitalization)
  Sender: FDA-Public Use
  Company Number: FR-DENTSPLY-2018SCDP000407

PATIENT
  Age: 66 Year
  Sex: Male

DRUGS (3)
  1. XYLOCAINE WITH ADRENALINE (EPINEPHRINE) [Suspect]
     Active Substance: EPINEPHRINE BITARTRATE\LIDOCAINE HYDROCHLORIDE
     Indication: LOCAL ANAESTHESIA
     Dosage: UNK
     Route: 014
     Dates: start: 20170131, end: 20170131
  2. KENACORT [Suspect]
     Active Substance: TRIAMCINOLONE
     Indication: JOINT INJECTION
     Dosage: UNK
     Route: 014
     Dates: start: 20170131, end: 20170131
  3. IOPAMIRON [Suspect]
     Active Substance: IOPAMIDOL
     Indication: JOINT INJECTION
     Dosage: UNK
     Route: 014
     Dates: start: 20170131, end: 20170131

REACTIONS (4)
  - Hyperhidrosis [Recovered/Resolved]
  - Nausea [Recovered/Resolved]
  - Malaise [Recovered/Resolved]
  - Headache [Recovered/Resolved]

NARRATIVE: CASE EVENT DATE: 20170131
